FAERS Safety Report 19481937 (Version 1)
Quarter: 2021Q2

REPORT INFORMATION
  Report Type: Spontaneous
  Country: US (occurrence: US)
  Receive Date: 20210630
  Receipt Date: 20210630
  Transmission Date: 20210717
  Serious: No
  Sender: FDA-Public Use
  Company Number: None

PATIENT
  Age: 35 Year
  Sex: Male

DRUGS (1)
  1. GENERIC NALTREXONE TABS [Suspect]
     Active Substance: NALTREXONE HYDROCHLORIDE
     Indication: DRUG DEPENDENCE
     Route: 048
     Dates: start: 20210615

REACTIONS (3)
  - Abdominal discomfort [None]
  - Drug dependence [None]
  - Treatment noncompliance [None]

NARRATIVE: CASE EVENT DATE: 20210623
